FAERS Safety Report 12009305 (Version 1)
Quarter: 2016Q1

REPORT INFORMATION
  Report Type: Spontaneous
  Country: US (occurrence: US)
  Receive Date: 20160205
  Receipt Date: 20160205
  Transmission Date: 20160526
  Serious: No
  Sender: FDA-Public Use
  Company Number: US-AUROBINDO-AUR-APL-2015-00041

PATIENT
  Age: 4 Year
  Sex: Female

DRUGS (1)
  1. CEFDINIR ORAL SUSPENSION [Suspect]
     Active Substance: CEFDINIR
     Indication: PNEUMONIA
     Dosage: 250 MG/DOSE, UNK
     Route: 048
     Dates: start: 20141224

REACTIONS (5)
  - Tongue blistering [Not Recovered/Not Resolved]
  - Glossodynia [Not Recovered/Not Resolved]
  - Somnolence [Not Recovered/Not Resolved]
  - Fatigue [Not Recovered/Not Resolved]
  - Asthenia [Not Recovered/Not Resolved]

NARRATIVE: CASE EVENT DATE: 20141228
